FAERS Safety Report 4433242-X (Version None)
Quarter: 2004Q3

REPORT INFORMATION
  Report Type: 
  Country: None (occurrence: None)
  Receive Date: 20040826
  Receipt Date: 20040416
  Transmission Date: 20050211
  Serious: Yes (Hospitalization)
  Sender: FDA-Public Use
  Company Number: PHBS2004NO05149

PATIENT
  Age: 86 Year
  Sex: Female

DRUGS (3)
  1. ZOMETA [Suspect]
     Indication: MULTIPLE MYELOMA
     Dosage: 4 MG, QMO
     Route: 042
     Dates: start: 20021001, end: 20040301
  2. ALKERAN [Concomitant]
     Dosage: 16 MG/D FOR 4 DAYS
     Route: 048
     Dates: start: 20021001, end: 20021201
  3. DEXAMETHASONE [Concomitant]
     Dosage: 16 MG/D
     Route: 065
     Dates: start: 20021001, end: 20021201

REACTIONS (5)
  - ACTINOMYCOSIS [None]
  - ASEPTIC NECROSIS BONE [None]
  - BONE DISORDER [None]
  - JAW DISORDER [None]
  - OSTEOMYELITIS [None]
